FAERS Safety Report 8615852-9 (Version None)
Quarter: 2012Q3

REPORT INFORMATION
  Report Type: 
  Country: None (occurrence: None)
  Receive Date: 20120823
  Receipt Date: 20120810
  Transmission Date: 20120928
  Serious: Yes (Hospitalization)
  Sender: FDA-Public Use
  Company Number: JP-ROCHE-1057935

PATIENT
  Sex: Male
  Weight: 63 kg

DRUGS (6)
  1. RHEUMATREX [Concomitant]
     Route: 048
     Dates: start: 20110126, end: 20110420
  2. RHEUMATREX [Concomitant]
     Route: 048
     Dates: start: 20110421
  3. RHEUMATREX [Concomitant]
     Route: 048
     Dates: start: 20080324, end: 20110125
  4. ACTEMRA [Suspect]
     Route: 041
     Dates: start: 20120319, end: 20120319
  5. ACTEMRA [Suspect]
     Indication: JUVENILE ARTHRITIS
     Dosage: DOSAGE IS UNCERTAIN.
     Route: 041
     Dates: start: 20120104, end: 20120104
  6. RHEUMATREX [Concomitant]
     Indication: JUVENILE ARTHRITIS
     Route: 048
     Dates: start: 20071105, end: 20080323

REACTIONS (7)
  - HENOCH-SCHONLEIN PURPURA [None]
  - ARTHRALGIA [None]
  - RASH [None]
  - TONSILLITIS [None]
  - PAIN IN EXTREMITY [None]
  - JEJUNITIS [None]
  - STOMATITIS [None]
